FAERS Safety Report 4296666-X (Version None)
Quarter: 2004Q1

REPORT INFORMATION
  Report Type: 
  Country: None (occurrence: None)
  Receive Date: 20040217
  Receipt Date: 20040212
  Transmission Date: 20041129
  Serious: Yes (Life-Threatening)
  Sender: FDA-Public Use
  Company Number: JP-ROCHE-358865

PATIENT
  Age: 25 Year
  Sex: Male

DRUGS (1)
  1. TAMIFLU [Suspect]
     Dosage: REGIMEN REPORTED AS 2
     Route: 048
     Dates: start: 20040130, end: 20040131

REACTIONS (1)
  - ANAPHYLACTOID REACTION [None]
